FAERS Safety Report 15065561 (Version 1)
Quarter: 2018Q2

REPORT INFORMATION
  Report Type: Other
  Country: GB (occurrence: GB)
  Receive Date: 20180626
  Receipt Date: 20180626
  Transmission Date: 20180711
  Serious: Yes (Other)
  Sender: FDA-Public Use
  Company Number: GB-ACI HEALTHCARE LIMITED-2049927

PATIENT
  Age: 18 Year
  Sex: Female
  Weight: 35.3 kg

DRUGS (1)
  1. GABAPENTIN. [Suspect]
     Active Substance: GABAPENTIN
     Indication: MUSCULOSKELETAL PAIN
     Route: 065

REACTIONS (2)
  - Product use in unapproved indication [Unknown]
  - Eosinophilic colitis [Recovering/Resolving]
